FAERS Safety Report 10027616 (Version 2)
Quarter: 2014Q1

REPORT INFORMATION
  Report Type: Spontaneous
  Country: DE (occurrence: DE)
  Receive Date: 20140321
  Receipt Date: 20140326
  Transmission Date: 20141002
  Serious: Yes (Hospitalization)
  Sender: FDA-Public Use
  Company Number: DE-PFIZER INC-2014079357

PATIENT
  Age: 75 Year
  Sex: Female
  Weight: 90 kg

DRUGS (9)
  1. PANTOZOL [Suspect]
     Dosage: 20 MG, SINGLE
  2. LYRICA [Suspect]
     Dosage: 100 MG, SINGLE
  3. IBUPROFEN [Suspect]
     Dosage: 800 MG, SINGLE
  4. CYMBALTA [Suspect]
     Dosage: 60 MG, SINGLE
  5. MADOPAR [Suspect]
     Dosage: 150/37.5 MG, SINGLE
  6. LEVOCOMP [Suspect]
     Dosage: 200/50 MG, SINGLE
  7. STALEVO [Suspect]
     Dosage: 4 DF, SINGLE
  8. OXYGESIC [Suspect]
     Dosage: 40 MG, SINGLE
  9. SFROL RET [Suspect]
     Dosage: 0.52 MG, SINGLE

REACTIONS (3)
  - Suicide attempt [Unknown]
  - Anxiety [Unknown]
  - Restlessness [Unknown]
